FAERS Safety Report 9686653 (Version 2)
Quarter: 2013Q4

REPORT INFORMATION
  Report Type: Report from Study
  Country: US (occurrence: US)
  Receive Date: 20131113
  Receipt Date: 20131113
  Transmission Date: 20140711
  Serious: Yes (Death)
  Sender: FDA-Public Use
  Company Number: US-MYLANLABS-2013S1024802

PATIENT
  Age: 56 Year
  Sex: Male

DRUGS (2)
  1. AMNESTEEM CAPSULES [Suspect]
     Indication: GLIOBLASTOMA MULTIFORME
     Dates: end: 201310
  2. AMNESTEEM CAPSULES [Suspect]
     Indication: OFF LABEL USE
     Dates: end: 201310

REACTIONS (1)
  - Brain neoplasm [Fatal]
